FAERS Safety Report 15795392 (Version 1)
Quarter: 2018Q4

REPORT INFORMATION
  Report Type: Spontaneous
  Country: US (occurrence: US)
  Receive Date: 20181213
  Receipt Date: 20181213
  Transmission Date: 20190205
  Serious: No
  Sender: FDA-Public Use
  Company Number: None

PATIENT
  Age: 31 Year
  Sex: Female
  Weight: 65.32 kg

DRUGS (1)
  1. ACTEMRA [Suspect]
     Active Substance: TOCILIZUMAB
     Dosage: ?          OTHER DOSE:162 MG (0.9 ML);OTHER FREQUENCY:EVERY 2 WKS;?
     Route: 058
     Dates: start: 201804

REACTIONS (1)
  - Malaise [None]
